FAERS Safety Report 4774252-2 (Version None)
Quarter: 2005Q3

REPORT INFORMATION
  Report Type: 
  Country: None (occurrence: None)
  Receive Date: 20050914
  Receipt Date: 20050307
  Transmission Date: 20060218
  Serious: Yes (Hospitalization)
  Sender: FDA-Public Use
  Company Number: 163-20785-05030168

PATIENT
  Age: 67 Year
  Sex: Male
  Weight: 75.4 kg

DRUGS (1)
  1. THALOMID [Suspect]
     Indication: NON-SMALL CELL LUNG CANCER
     Dosage: 200 MG, DAILY, ORAL
     Route: 048
     Dates: start: 20050207

REACTIONS (1)
  - PNEUMONIA [None]
